FAERS Safety Report 9443031 (Version 2)
Quarter: 2013Q3

REPORT INFORMATION
  Report Type: Report from Study
  Country: CA (occurrence: CA)
  Receive Date: 20130806
  Receipt Date: 20130809
  Transmission Date: 20140515
  Serious: Yes (Other)
  Sender: FDA-Public Use
  Company Number: PHHY2013CA083593

PATIENT
  Sex: Male

DRUGS (3)
  1. CLOZARIL [Suspect]
     Indication: SCHIZOPHRENIA
     Dosage: 162.5 MG, UNK
     Route: 048
     Dates: start: 20071127, end: 20130716
  2. LATUDA [Concomitant]
     Dosage: 120 MG, UNK
  3. BENZTROPINE [Concomitant]
     Dosage: UNK UKN, UNK

REACTIONS (5)
  - Metabolic syndrome [Recovering/Resolving]
  - Type 2 diabetes mellitus [Recovering/Resolving]
  - Weight increased [Recovering/Resolving]
  - Hypertension [Recovering/Resolving]
  - Somnolence [Recovering/Resolving]
